FAERS Safety Report 6977010-3 (Version None)
Quarter: 2010Q3

REPORT INFORMATION
  Report Type: 
  Country: None (occurrence: None)
  Receive Date: 20100824
  Receipt Date: 20100614
  Transmission Date: 20110219
  Serious: No
  Sender: FDA-Public Use
  Company Number: 310172

PATIENT
  Age: 53 Year
  Sex: Male

DRUGS (1)
  1. VICTOZA [Suspect]
     Indication: DIABETES MELLITUS
     Dosage: SUBCUTANEOUS
     Route: 058

REACTIONS (4)
  - DECREASED APPETITE [None]
  - DYSGEUSIA [None]
  - HYPOGEUSIA [None]
  - PAROSMIA [None]
